FAERS Safety Report 23211346 (Version 6)
Quarter: 2024Q1

REPORT INFORMATION
  Report Type: Spontaneous
  Country: JP (occurrence: JP)
  Receive Date: 20231121
  Receipt Date: 20240227
  Transmission Date: 20240410
  Serious: Yes (Hospitalization)
  Sender: FDA-Public Use
  Company Number: JP-ABBVIE-5498984

PATIENT
  Age: 55 Year
  Sex: Male
  Weight: 52 kg

DRUGS (9)
  1. RINVOQ [Suspect]
     Active Substance: UPADACITINIB
     Indication: Colitis ulcerative
     Dosage: 30 MILLIGRAM
     Route: 048
     Dates: start: 20231003, end: 20231031
  2. CLOSTRIDIUM BUTYRICUM SPORES STRAIN M-55 [Concomitant]
     Active Substance: CLOSTRIDIUM BUTYRICUM SPORES STRAIN M-55
     Indication: Diarrhoea
     Dosage: 2 TABLET
     Route: 048
     Dates: start: 20201128
  3. SULFAMETHOXAZOLE AND TRIMETHOPRIM [Concomitant]
     Active Substance: SULFAMETHOXAZOLE\TRIMETHOPRIM
     Indication: Antifungal prophylaxis
     Dosage: 1 TABLET
     Route: 048
     Dates: start: 20201204, end: 20231211
  4. DIMETHICONE [Concomitant]
     Active Substance: DIMETHICONE
     Indication: Flatulence
     Dosage: TIME INTERVAL: 0.33333333 DAYS: FORM STRENGTH: 40MG
     Route: 048
     Dates: start: 20231008, end: 20231211
  5. TACROLIMUS [Concomitant]
     Active Substance: TACROLIMUS
     Indication: Colitis ulcerative
     Dosage: TACROLIMUS HYDRATE?FORM STRENGTH: 1MG
     Route: 048
     Dates: start: 20231115, end: 20231211
  6. TACROLIMUS [Concomitant]
     Active Substance: TACROLIMUS
     Indication: Colitis ulcerative
     Dosage: TACROLIMUS HYDRATE?FORM STRENGTH: 1MG
     Route: 048
     Dates: start: 20201202, end: 20231003
  7. RABEPRAZOLE SODIUM [Concomitant]
     Active Substance: RABEPRAZOLE SODIUM
     Indication: Gastrooesophageal reflux disease
     Dosage: 10 MILLIGRAM?FORM STRENGTH: 10MG
     Route: 048
     Dates: start: 20201225
  8. ESZOPICLONE [Concomitant]
     Active Substance: ESZOPICLONE
     Indication: Insomnia
     Dosage: 1 MILLIGRAM?FORM STRENGTH: 1MG
     Route: 048
     Dates: start: 20230923
  9. AMINO ACIDS\CARBOHYDRATES\MINERALS\SOYBEAN OIL\VITAMINS [Concomitant]
     Active Substance: AMINO ACIDS\CARBOHYDRATES\MINERALS\SOYBEAN OIL\VITAMINS
     Indication: Colitis ulcerative
     Route: 048
     Dates: start: 20231005, end: 20231024

REACTIONS (3)
  - Cytomegalovirus enterocolitis [Recovering/Resolving]
  - Colitis ulcerative [Not Recovered/Not Resolved]
  - Cytomegalovirus infection [Unknown]

NARRATIVE: CASE EVENT DATE: 20231031
